FAERS Safety Report 6259174-2 (Version None)
Quarter: 2009Q3

REPORT INFORMATION
  Report Type: 
  Country: None (occurrence: None)
  Receive Date: 20090707
  Receipt Date: 20090629
  Transmission Date: 20100115
  Serious: Yes (Hospitalization, Other)
  Sender: FDA-Public Use
  Company Number: US-AVENTIS-200812965US

PATIENT
  Sex: Male
  Weight: 74.8 kg

DRUGS (22)
  1. LANTUS [Suspect]
     Route: 058
     Dates: start: 20080401
  2. LANTUS [Suspect]
     Route: 058
     Dates: start: 20080401
  3. LANTUS [Suspect]
     Dosage: DOSE: UNK
     Route: 058
  4. TOPROL-XL [Suspect]
     Indication: HYPERTENSION
     Route: 048
     Dates: end: 20080417
  5. HYDROCHLOROTHIAZIDE [Suspect]
     Indication: HYPERTENSION
     Route: 048
     Dates: end: 20080417
  6. CLONIDINE HCL [Concomitant]
     Route: 048
     Dates: start: 20080417
  7. NORVASC [Concomitant]
     Route: 048
     Dates: start: 20080417
  8. HUMALOG [Concomitant]
     Dosage: DOSE: 5-7 WITH MEALS
     Route: 058
  9. XANAX [Concomitant]
     Indication: INSOMNIA
     Route: 048
  10. XANAX [Concomitant]
     Route: 042
     Dates: start: 20080417
  11. XANAX [Concomitant]
     Indication: ANXIETY
     Route: 048
  12. XANAX [Concomitant]
     Route: 042
     Dates: start: 20080417
  13. INSULIN [Concomitant]
     Dosage: DOSE: UNK
  14. LISINOPRIL [Concomitant]
     Route: 048
     Dates: start: 20080418
  15. ASPIRIN [Concomitant]
     Route: 048
     Dates: start: 20080416
  16. HUMALOG [Concomitant]
     Dates: start: 20080418
  17. HEPARIN [Concomitant]
     Dosage: DOSE: 5000 U EVERY 8 HOURS
     Route: 058
     Dates: start: 20080401
  18. POTASSIUM CHLORIDE [Concomitant]
     Route: 048
     Dates: start: 20080417
  19. PROTONIX [Concomitant]
     Route: 048
     Dates: start: 20080417
  20. M.V.I. [Concomitant]
     Dosage: DOSE: 1 UNIT DAILY
     Route: 048
     Dates: start: 20080417
  21. NOVOLIN R [Concomitant]
     Dosage: DOSE: SLIDING SCALE BEFORE EACH MEAL AND BEDTIME
     Dates: start: 20080401
  22. VIAGRA [Concomitant]
     Dates: start: 20071112

REACTIONS (10)
  - ASTHENIA [None]
  - BLOOD GLUCOSE INCREASED [None]
  - BRADYCARDIA [None]
  - CONFUSIONAL STATE [None]
  - DEPRESSED LEVEL OF CONSCIOUSNESS [None]
  - DRUG INEFFECTIVE [None]
  - DYSARTHRIA [None]
  - HYPOGLYCAEMIC UNCONSCIOUSNESS [None]
  - HYPOKALAEMIA [None]
  - LETHARGY [None]
